FAERS Safety Report 8434861-6 (Version None)
Quarter: 2012Q2

REPORT INFORMATION
  Report Type: 
  Country: None (occurrence: None)
  Receive Date: 20120614
  Receipt Date: 20120606
  Transmission Date: 20120825
  Serious: Yes (Death, Hospitalization)
  Sender: FDA-Public Use
  Company Number: US-BAYER-201038758NA

PATIENT
  Age: 49 Year
  Sex: Female
  Weight: 63.492 kg

DRUGS (10)
  1. BLOOD PRESSURE MEDICATION (NOS) [Concomitant]
     Indication: HYPERTENSION
     Dosage: UNK
     Dates: start: 20080101, end: 20080101
  2. LOVENOX [Concomitant]
  3. ENALAPRIL MALEATE [Concomitant]
     Indication: HYPERTENSION
     Dosage: 5 MG, DAILY
  4. AGGRASTAT [Concomitant]
  5. YAZ [Suspect]
     Indication: CONTRACEPTION
     Dosage: UNK
     Route: 048
     Dates: start: 20080401, end: 20081201
  6. LOPRESSOR [Concomitant]
  7. PLAVIX [Concomitant]
  8. DYAZIDE [Concomitant]
     Dosage: 37.5 MG/25 MG DAILY
  9. ASPIRIN [Concomitant]
  10. ALDARA [Concomitant]
     Indication: ACTINIC KERATOSIS
     Route: 061

REACTIONS (3)
  - CHOLECYSTITIS CHRONIC [None]
  - GALLBLADDER INJURY [None]
  - MYOCARDIAL INFARCTION [None]
